FAERS Safety Report 24236255 (Version 1)
Quarter: 2024Q3

REPORT INFORMATION
  Report Type: Spontaneous
  Country: BE (occurrence: BE)
  Receive Date: 20240822
  Receipt Date: 20240822
  Transmission Date: 20241016
  Serious: Yes (Hospitalization, Other)
  Sender: CSL BEHRING
  Company Number: None

PATIENT
  Age: 55 Year
  Sex: Female

DRUGS (5)
  1. PRIVIGEN [Suspect]
     Active Substance: HUMAN IMMUNOGLOBULIN G
     Indication: Product used for unknown indication
     Dosage: PLANNED DOSAGE : 110G OVER 2 DAYS, EVERY 4 XEEKS24/07 : ADMINISTRATION OF 10 G OF THE 50G PLANNED
     Dates: start: 20240724
  2. PRIVIGEN [Suspect]
     Active Substance: HUMAN IMMUNOGLOBULIN G
     Dosage: PLANNED DOSAGE : 110G OVER 2 DAYS, EVERY 4 XEEKS
     Dates: start: 20240723
  3. CLONIDINE [Concomitant]
     Active Substance: CLONIDINE
     Indication: Hypertension
     Dosage: DURING TREATMENT, TENDENCY TO ARTERIEL HYPERTENSION
  4. GABAPENTINE ENACARBIL [Concomitant]
     Indication: Neuropathy peripheral
     Dosage: 2 DF, QD
  5. IMURAN [Concomitant]
     Active Substance: AZATHIOPRINE
     Dosage: 1 DF, QD

REACTIONS (11)
  - Myoclonus [Recovered/Resolved]
  - Hemiclonic seizure [Recovered/Resolved]
  - Areflexia [Recovering/Resolving]
  - Neck pain [Recovering/Resolving]
  - Hypertension [Recovering/Resolving]
  - Tachycardia [Recovering/Resolving]
  - Oxygen saturation decreased [Recovering/Resolving]
  - Muscle strength abnormal [Recovering/Resolving]
  - Headache [Not Recovered/Not Resolved]
  - Bundle branch block right [Recovering/Resolving]
  - Hypoaesthesia [Recovered/Resolved]

NARRATIVE: CASE EVENT DATE: 20240724
